FAERS Safety Report 10047537 (Version 3)
Quarter: 2014Q2

REPORT INFORMATION
  Report Type: Spontaneous
  Country: US (occurrence: US)
  Receive Date: 20140331
  Receipt Date: 20140501
  Transmission Date: 20141212
  Serious: Yes (Other)
  Sender: FDA-Public Use
  Company Number: US-SA-2014SA035736

PATIENT
  Age: 70 Year
  Sex: Female
  Weight: 75.29 kg

DRUGS (14)
  1. LANTUS SOLOSTAR [Suspect]
     Indication: TYPE 2 DIABETES MELLITUS
     Dosage: DOSE:18 UNIT(S)
     Route: 065
  2. LANTUS SOLOSTAR [Suspect]
     Indication: TYPE 2 DIABETES MELLITUS
     Dosage: DOSE:18 UNIT(S)
     Route: 065
  3. SOLOSTAR [Concomitant]
     Indication: DEVICE THERAPY
  4. HUMALOG [Concomitant]
     Dosage: DOSE:5 UNIT(S)
  5. NIASPAN [Concomitant]
  6. GABAPENTIN [Concomitant]
     Indication: MUSCLE SPASMS
  7. FENOFIBRATE [Concomitant]
  8. NORVASC [Concomitant]
     Indication: BLOOD PRESSURE
  9. TOPROL XL [Concomitant]
  10. EFFIENT [Concomitant]
     Indication: BLOOD DISORDER
  11. METOPROLOL [Concomitant]
     Indication: BLOOD PRESSURE
  12. ASPIRIN [Concomitant]
  13. MULTIVITAMINS [Concomitant]
  14. EVISTA [Concomitant]
     Indication: BONE DISORDER

REACTIONS (4)
  - Renal failure [Recovered/Resolved]
  - General physical health deterioration [Recovered/Resolved]
  - Dysphonia [Recovered/Resolved]
  - Multiple allergies [Recovered/Resolved]
